FAERS Safety Report 7638954-2 (Version None)
Quarter: 2011Q3

REPORT INFORMATION
  Report Type: 
  Country: None (occurrence: None)
  Receive Date: 20110725
  Receipt Date: 20110725
  Transmission Date: 20111222
  Serious: Yes (Life-Threatening, Hospitalization)
  Sender: FDA-Public Use
  Company Number: None

PATIENT
  Age: 57 Year
  Sex: Male
  Weight: 149.1 kg

DRUGS (2)
  1. NEOMYCIN AND POLYMYXIN B SULFATE [Suspect]
     Indication: PARALYSIS
     Dosage: TOP
     Route: 061
     Dates: start: 20110627, end: 20110627
  2. PETROLATUM [Suspect]
     Indication: PARALYSIS
     Dosage: TOP
     Route: 061
     Dates: start: 20110627, end: 20110627

REACTIONS (3)
  - TONGUE OEDEMA [None]
  - PRURITUS [None]
  - LIP SWELLING [None]
